FAERS Safety Report 16094142 (Version 1)
Quarter: 2019Q1

REPORT INFORMATION
  Report Type: Spontaneous
  Country: US (occurrence: US)
  Receive Date: 20190226
  Receipt Date: 20190226
  Transmission Date: 20190418
  Serious: No
  Sender: FDA-Public Use
  Company Number: None

PATIENT
  Age: 47 Year
  Sex: Male

DRUGS (1)
  1. EPCLUSA [Suspect]
     Active Substance: SOFOSBUVIR\VELPATASVIR
     Route: 048
     Dates: start: 201812

REACTIONS (8)
  - Nasopharyngitis [None]
  - Pulmonary congestion [None]
  - Infection [None]
  - Memory impairment [None]
  - Fatigue [None]
  - Nausea [None]
  - Cough [None]
  - Therapy cessation [None]

NARRATIVE: CASE EVENT DATE: 20190226
